FAERS Safety Report 7722575-7 (Version None)
Quarter: 2011Q3

REPORT INFORMATION
  Report Type: 
  Country: None (occurrence: None)
  Receive Date: 20110831
  Receipt Date: 20110825
  Transmission Date: 20111222
  Serious: Yes (Other)
  Sender: FDA-Public Use
  Company Number: DE-PFIZER INC-2011198929

PATIENT
  Age: 72 Year
  Sex: Female

DRUGS (1)
  1. CAMPTOSAR [Suspect]
     Dosage: UNK
     Dates: start: 20110601

REACTIONS (1)
  - OPTIC NEURITIS [None]
